FAERS Safety Report 8293765-2 (Version None)
Quarter: 2012Q2

REPORT INFORMATION
  Report Type: 
  Country: None (occurrence: None)
  Receive Date: 20120413
  Receipt Date: 20120405
  Transmission Date: 20120825
  Serious: Yes (Other)
  Sender: FDA-Public Use
  Company Number: 2012FO001057

PATIENT
  Age: 90 Year
  Sex: Male

DRUGS (1)
  1. SOLARAZE [Suspect]
     Indication: PRODUCT USED FOR UNKNOWN INDICATION
     Dosage: BID;TOP, QD;TOP
     Route: 061

REACTIONS (2)
  - HALLUCINATION [None]
  - HEADACHE [None]
